FAERS Safety Report 4426078-7 (Version None)
Quarter: 2004Q3

REPORT INFORMATION
  Report Type: 
  Country: None (occurrence: None)
  Receive Date: 20040811
  Receipt Date: 20040728
  Transmission Date: 20050211
  Serious: Yes (Hospitalization)
  Sender: FDA-Public Use
  Company Number: 230001M04CHN

PATIENT
  Sex: Male
  Weight: 63 kg

DRUGS (2)
  1. REBIF [Suspect]
     Indication: HEPATITIS B
     Dosage: 44 MCG, 2 IN 1 WEEKS SUBCUTANEOUS
     Route: 058
     Dates: start: 20040712, end: 20040728
  2. LAMIVUDINE [Suspect]
     Indication: HEPATITIS B
     Dosage: 100 MG 1 IN 1 DAYS PER ORAL
     Route: 048
     Dates: start: 20030217

REACTIONS (2)
  - CONDITION AGGRAVATED [None]
  - HEPATITIS B [None]
